FAERS Safety Report 10160095 (Version 1)
Quarter: 2014Q2

REPORT INFORMATION
  Report Type: Spontaneous
  Country: US (occurrence: US)
  Receive Date: 20140508
  Receipt Date: 20140508
  Transmission Date: 20141212
  Serious: Yes (Hospitalization)
  Sender: FDA-Public Use
  Company Number: US-GLAXOSMITHKLINE-A1065439A

PATIENT
  Age: 67 Year
  Sex: Female

DRUGS (1)
  1. TYKERB [Suspect]
     Indication: BREAST CANCER
     Dosage: 750MG PER DAY
     Route: 065

REACTIONS (6)
  - Convulsion [Unknown]
  - Localised infection [Unknown]
  - Peripheral swelling [Recovered/Resolved]
  - Skin disorder [Recovered/Resolved]
  - Wound secretion [Recovered/Resolved]
  - Incorrect dose administered [Unknown]
